FAERS Safety Report 4592919-6 (Version None)
Quarter: 2005Q1

REPORT INFORMATION
  Report Type: 
  Country: None (occurrence: None)
  Receive Date: 20050228
  Receipt Date: 20050215
  Transmission Date: 20050727
  Serious: Yes (Congenital Anomaly)
  Sender: FDA-Public Use
  Company Number: US-GLAXOSMITHKLINE-A0546783A

PATIENT
  Sex: Female
  Weight: 3 kg

DRUGS (3)
  1. COMBIVIR [Suspect]
     Indication: HIV INFECTION
     Dosage: 1TAB TWICE PER DAY
     Route: 048
     Dates: start: 20040622, end: 20041231
  2. RETROVIR [Suspect]
     Indication: ANTIVIRAL PROPHYLAXIS
  3. VIRACEPT [Concomitant]
     Indication: HIV INFECTION
     Dosage: 1250MG TWICE PER DAY
     Route: 048
     Dates: start: 20040622, end: 20041231

REACTIONS (2)
  - CARDIAC MURMUR [None]
  - MASS [None]
